FAERS Safety Report 7355112-X (Version None)
Quarter: 2011Q1

REPORT INFORMATION
  Report Type: 
  Country: None (occurrence: None)
  Receive Date: 20110316
  Receipt Date: 20110308
  Transmission Date: 20110831
  Serious: Yes (Hospitalization, Other)
  Sender: FDA-Public Use
  Company Number: DE-ELI_LILLY_AND_COMPANY-DE201103002662

PATIENT
  Sex: Female

DRUGS (3)
  1. MORPHINE [Concomitant]
     Dosage: UNK, UNKNOWN
     Route: 065
  2. CORTISONE [Concomitant]
     Dosage: UNK, UNKNOWN
     Route: 065
  3. FORTEO [Suspect]
     Indication: OSTEOPOROSIS
     Dosage: UNK, UNKNOWN
     Route: 058
     Dates: start: 20091222, end: 20110101

REACTIONS (4)
  - BLINDNESS [None]
  - INTRAOCULAR PRESSURE INCREASED [None]
  - EYE DISCHARGE [None]
  - OCULAR NEOPLASM [None]
